FAERS Safety Report 4520284-9 (Version None)
Quarter: 2004Q4

REPORT INFORMATION
  Report Type: 
  Country: None (occurrence: None)
  Receive Date: 20041207
  Receipt Date: 20011109
  Transmission Date: 20050328
  Serious: Yes (Other)
  Sender: FDA-Public Use
  Company Number: PHNU2001DE02629

PATIENT
  Sex: Female

DRUGS (1)
  1. ZOMETA [Suspect]
     Indication: COLON CANCER
     Dosage: 4 MG, QMO
     Dates: start: 20010601

REACTIONS (1)
  - ASEPTIC NECROSIS BONE [None]
